FAERS Safety Report 23088106 (Version 1)
Quarter: 2023Q4

REPORT INFORMATION
  Report Type: Report from Study
  Country: US (occurrence: US)
  Receive Date: 20231020
  Receipt Date: 20231020
  Transmission Date: 20240109
  Serious: Yes (Other)
  Sender: FDA-Public Use
  Company Number: US-ABBVIE-5370418

PATIENT
  Sex: Female

DRUGS (1)
  1. HUMIRA [Suspect]
     Active Substance: ADALIMUMAB
     Indication: Hidradenitis
     Dosage: CITRATE FREE?FORM STRENGTH: 40 MG?LAST ADMIN DATE 2023
     Route: 058
     Dates: start: 20230616

REACTIONS (4)
  - Foetal death [Unknown]
  - Chalazion [Recovered/Resolved]
  - Maternal exposure during pregnancy [Unknown]
  - Multiple pregnancy [Unknown]

NARRATIVE: CASE EVENT DATE: 20230101
